FAERS Safety Report 5012220-6 (Version None)
Quarter: 2006Q2

REPORT INFORMATION
  Report Type: 
  Country: None (occurrence: None)
  Receive Date: 20060406
  Receipt Date: 20051121
  Transmission Date: 20061013
  Serious: Yes (Death)
  Sender: FDA-Public Use
  Company Number: SUS1-2005-00841

PATIENT
  Age: 21 Year
  Sex: Female

DRUGS (1)
  1. ADDERALL 10 [Suspect]
     Dosage: 20 MG, 3X/DAY:TID
     Dates: start: 20020101

REACTIONS (1)
  - SUDDEN DEATH [None]
